FAERS Safety Report 16276977 (Version 8)
Quarter: 2020Q4

REPORT INFORMATION
  Report Type: Spontaneous
  Country: US (occurrence: US)
  Receive Date: 20190506
  Receipt Date: 20201211
  Transmission Date: 20210113
  Serious: Yes (Hospitalization, Other)
  Sender: FDA-Public Use
  Company Number: US-PFIZER INC-2019189666

PATIENT
  Age: 58 Year
  Sex: Male

DRUGS (4)
  1. LYRICA [Suspect]
     Active Substance: PREGABALIN
     Indication: NEURALGIA
     Dosage: 300 MG, DAILY
  2. LYRICA [Suspect]
     Active Substance: PREGABALIN
     Indication: LUMBAR RADICULOPATHY
  3. LYRICA [Suspect]
     Active Substance: PREGABALIN
     Indication: CERVICAL SPINAL STENOSIS
  4. LYRICA [Suspect]
     Active Substance: PREGABALIN
     Indication: PAIN
     Dosage: 100 MG, 3X/DAY
     Route: 048
     Dates: start: 20201203

REACTIONS (9)
  - Drug dependence [Unknown]
  - Sleep disorder [Unknown]
  - Drug abuse [Unknown]
  - Illness [Unknown]
  - Feeling abnormal [Unknown]
  - Spinal disorder [Not Recovered/Not Resolved]
  - Cognitive disorder [Unknown]
  - Back disorder [Not Recovered/Not Resolved]
  - Cerebral disorder [Unknown]
